FAERS Safety Report 9955634 (Version 1)
Quarter: 2014Q1

REPORT INFORMATION
  Report Type: Report from Study
  Country: US (occurrence: US)
  Receive Date: 20140304
  Receipt Date: 20140304
  Transmission Date: 20141002
  Serious: No
  Sender: FDA-Public Use
  Company Number: US-ABBVIE-13P-163-1090405-00

PATIENT
  Age: 49 Year
  Sex: Male
  Weight: 80.81 kg

DRUGS (4)
  1. HUMIRA [Suspect]
     Indication: CROHN^S DISEASE
     Route: 058
     Dates: start: 201210, end: 201210
  2. HUMIRA [Suspect]
     Route: 058
     Dates: start: 201211, end: 201211
  3. HUMIRA [Suspect]
     Route: 058
     Dates: start: 201211
  4. LUNESTA [Concomitant]
     Indication: INSOMNIA
     Dates: start: 201201

REACTIONS (2)
  - Upper-airway cough syndrome [Recovering/Resolving]
  - Influenza [Recovering/Resolving]
